FAERS Safety Report 9465989 (Version 2)
Quarter: 2013Q4

REPORT INFORMATION
  Report Type: Spontaneous
  Country: US (occurrence: US)
  Receive Date: 20130820
  Receipt Date: 20131025
  Transmission Date: 20140711
  Serious: Yes (Other)
  Sender: FDA-Public Use
  Company Number: US-FRI-1000047811

PATIENT
  Age: 68 Year
  Sex: Female

DRUGS (9)
  1. VIIBRYD [Suspect]
     Indication: DEPRESSION
     Dosage: 10 MG
     Route: 048
     Dates: start: 20120719, end: 20120725
  2. VIIBRYD [Suspect]
     Dosage: 20 MG
     Route: 048
     Dates: start: 20120726, end: 20120822
  3. VIIBRYD [Suspect]
     Indication: DEPRESSION
     Dosage: 30 MG
     Route: 048
     Dates: start: 20120823, end: 20120904
  4. OXCARBAZEPINE [Concomitant]
     Indication: NERVOUS SYSTEM DISORDER
     Dates: end: 2012
  5. LOVASTATIN [Concomitant]
  6. LEVOTHYROXINE [Concomitant]
  7. PREMARIN [Concomitant]
  8. HYDROCODONE [Concomitant]
  9. MILK OF MAGNESIA [Concomitant]

REACTIONS (1)
  - Rectal haemorrhage [Recovered/Resolved]
